FAERS Safety Report 10244676 (Version 1)
Quarter: 2014Q2

REPORT INFORMATION
  Report Type: Spontaneous
  Country: IT (occurrence: IT)
  Receive Date: 20140618
  Receipt Date: 20140618
  Transmission Date: 20141212
  Serious: Yes (Hospitalization, Other)
  Sender: FDA-Public Use
  Company Number: IT-BRISTOL-MYERS SQUIBB COMPANY-20977633

PATIENT
  Age: 70 Year
  Sex: Male

DRUGS (10)
  1. COUMADIN TABS 5 MG [Suspect]
     Indication: ATRIAL FIBRILLATION
     Dosage: 1DF=1 UNIT
     Route: 048
     Dates: start: 20140128
  2. TRIATEC [Concomitant]
     Dosage: TRIATEC 2.5 MG TABS
     Route: 048
     Dates: start: 20140128
  3. LANOXIN [Concomitant]
     Dosage: 0.125 MG TABS
     Route: 048
     Dates: start: 20140102
  4. CARDICOR [Concomitant]
     Dosage: 2.5 MG TABS
     Route: 048
     Dates: start: 20140128
  5. ALLOPURINOL [Concomitant]
     Dosage: ALLOPURINOL 300 MG TABS
     Route: 048
     Dates: start: 20140128
  6. LASIX [Concomitant]
     Dosage: 25 MG TABS
     Route: 048
     Dates: start: 20140128
  7. ATORVASTATIN [Concomitant]
     Dosage: 20 MG TABS
     Route: 048
     Dates: start: 20140128
  8. LANTUS [Concomitant]
     Indication: TYPE 2 DIABETES MELLITUS
     Dosage: 100 U/ML INJECTION SOLUTION
     Route: 058
     Dates: start: 20140409
  9. METFORAL [Concomitant]
     Dosage: 500 MG TABS
     Route: 048
     Dates: start: 20140409
  10. NOVONORM [Concomitant]
     Dosage: 1.0 MG TABS
     Route: 048
     Dates: start: 20140409

REACTIONS (2)
  - Haematoma [Recovered/Resolved]
  - Bronchopneumonia [Recovered/Resolved]
